FAERS Safety Report 9692914 (Version 1)
Quarter: 2013Q4

REPORT INFORMATION
  Report Type: Spontaneous
  Country: US (occurrence: US)
  Receive Date: 20131118
  Receipt Date: 20131118
  Transmission Date: 20140711
  Serious: No
  Sender: FDA-Public Use
  Company Number: US-GLAXOSMITHKLINE-A0999456A

PATIENT
  Age: 77 Year
  Sex: Female

DRUGS (18)
  1. COREG CR [Suspect]
     Indication: HYPERTENSION
     Dosage: 80MG PER DAY
     Route: 048
     Dates: start: 20090115
  2. DIOVAN [Concomitant]
  3. TOPROL XL [Concomitant]
  4. SYNTHROID [Concomitant]
  5. IMDUR [Concomitant]
  6. LASIX [Concomitant]
  7. LIPITOR [Concomitant]
  8. INSULIN LANTUS [Concomitant]
  9. HUMALOG INSULIN [Concomitant]
  10. LITHIUM [Concomitant]
  11. WELLBUTRIN [Concomitant]
  12. INFLUENZA VACCINE [Concomitant]
     Dates: start: 201210
  13. CITRACAL [Concomitant]
  14. CENTRUM [Concomitant]
  15. ECOTRIN [Concomitant]
  16. FISH OIL [Concomitant]
  17. VITAMIN D2 [Concomitant]
  18. PAIN MEDICATION [Concomitant]

REACTIONS (2)
  - Hypotension [Recovering/Resolving]
  - Dizziness [Unknown]
